FAERS Safety Report 7892053-3 (Version None)
Quarter: 2011Q4

REPORT INFORMATION
  Report Type: 
  Country: None (occurrence: None)
  Receive Date: 20111103
  Receipt Date: 20110812
  Transmission Date: 20120403
  Serious: No
  Sender: FDA-Public Use
  Company Number: US-AMGEN-USASP2011041389

PATIENT
  Age: 72 Year
  Sex: Female

DRUGS (1)
  1. ENBREL [Suspect]
     Indication: RHEUMATOID ARTHRITIS
     Dosage: 25 MG, 2 TIMES/WK
     Dates: start: 20040420, end: 20110701

REACTIONS (6)
  - FATIGUE [None]
  - RASH [None]
  - EAR DISCOMFORT [None]
  - FUNGAL INFECTION [None]
  - COUGH [None]
  - OROPHARYNGEAL PAIN [None]
